FAERS Safety Report 16715958 (Version 1)
Quarter: 2019Q3

REPORT INFORMATION
  Report Type: Spontaneous
  Country: US (occurrence: US)
  Receive Date: 20190819
  Receipt Date: 20190819
  Transmission Date: 20191005
  Serious: Yes (Death, Life-Threatening, Disabling, Other)
  Sender: FDA-Public Use
  Company Number: US-009507513-1908USA006243

PATIENT
  Age: 80 Year
  Sex: Male

DRUGS (1)
  1. BRIDION [Suspect]
     Active Substance: SUGAMMADEX
     Indication: SURGERY
     Dosage: UNK
     Route: 042
     Dates: start: 2019

REACTIONS (3)
  - Bradycardia [Unknown]
  - Cardiac arrest [Unknown]
  - Death [Fatal]

NARRATIVE: CASE EVENT DATE: 2019
